FAERS Safety Report 8567415-1 (Version None)
Quarter: 2012Q3

REPORT INFORMATION
  Report Type: 
  Country: None (occurrence: None)
  Receive Date: 20120803
  Receipt Date: 20120730
  Transmission Date: 20120928
  Serious: Yes (Other)
  Sender: FDA-Public Use
  Company Number: PHHY2012BR066873

PATIENT
  Age: 63 Year
  Sex: Female

DRUGS (2)
  1. DIOVAN HCT [Suspect]
     Indication: HYPERTENSION
     Dosage: 1 DF (320/12.5 MG), IN THE MORNING
  2. DIOVAN HCT [Suspect]
     Dosage: 1 DF (320/12.5 MG), AT NIGHT WHEN SHE IDENTIFIED THAT WAS FEELING BAD

REACTIONS (2)
  - HYPERTENSION [None]
  - DIABETES MELLITUS [None]
